FAERS Safety Report 9300235 (Version 2)
Quarter: 2013Q2

REPORT INFORMATION
  Report Type: Spontaneous
  Country: JP (occurrence: JP)
  Receive Date: 20130521
  Receipt Date: 20130528
  Transmission Date: 20140414
  Serious: Yes (Other)
  Sender: FDA-Public Use
  Company Number: PHHY2013JP050164

PATIENT
  Sex: 0

DRUGS (1)
  1. CERTICAN [Suspect]
     Indication: HEART TRANSPLANT
     Dosage: UNK
     Route: 048

REACTIONS (1)
  - Renal impairment [Unknown]
